FAERS Safety Report 8314544-3 (Version None)
Quarter: 2012Q1

REPORT INFORMATION
  Report Type: 
  Country: None (occurrence: None)
  Receive Date: 20120315
  Receipt Date: 20110510
  Transmission Date: 20120608
  Serious: Yes (Other)
  Sender: FDA-Public Use
  Company Number: PHHY2011US39762

PATIENT
  Age: 55 Year
  Sex: Female

DRUGS (18)
  1. VITAMIN B12 [Concomitant]
  2. ASCORBIC ACID [Concomitant]
  3. PREVEN (ETHINYLESTRADIOL, LEVONORGESTREL) [Concomitant]
  4. ALPHAGAN [Concomitant]
  5. SOL MEDROL (METHYLPREDNISOLONE, SUCCINATE SODIUM) [Concomitant]
  6. AMBIEN [Concomitant]
  7. CALCIUM CARBONATE [Concomitant]
  8. ZOLOFT [Concomitant]
  9. TOPROL-XL [Concomitant]
  10. CONCERTA [Concomitant]
  11. ESTRATEST [Concomitant]
  12. VITAMIN B2 (RIBOFLAVIN) [Concomitant]
  13. GILENYA [Suspect]
     Indication: MULTIPLE SCLEROSIS
     Dosage: 0.5 MG, QD, ORAL
     Route: 048
     Dates: start: 20110103
  14. AMPYRA [Concomitant]
  15. ALLEGRA [Concomitant]
  16. ARICEPT [Concomitant]
  17. EMITEX /00014902/ (CYCLIZINE HYDROCHLORIDE) [Concomitant]
  18. VERAMYST (FLUTICASONE FUROATE) [Concomitant]

REACTIONS (10)
  - GRANULOCYTE COUNT INCREASED [None]
  - MEAN CELL HAEMOGLOBIN DECREASED [None]
  - ASPARTATE AMINOTRANSFERASE INCREASED [None]
  - UROBILINOGEN URINE INCREASED [None]
  - HEADACHE [None]
  - BLOOD TRIGLYCERIDES INCREASED [None]
  - BLOOD CREATININE INCREASED [None]
  - HIGH DENSITY LIPOPROTEIN INCREASED [None]
  - ALANINE AMINOTRANSFERASE INCREASED [None]
  - LYMPHOCYTE COUNT DECREASED [None]
